FAERS Safety Report 9698092 (Version 1)
Quarter: 2013Q4

REPORT INFORMATION
  Report Type: Spontaneous
  Country: GB (occurrence: None)
  Receive Date: 20131118
  Receipt Date: 20131118
  Transmission Date: 20140711
  Serious: Yes (Hospitalization, Other)
  Sender: FDA-Public Use
  Company Number: AUR-APL-2013-09576

PATIENT
  Age: 82 Year
  Sex: Female

DRUGS (10)
  1. BISOPROLOL [Suspect]
     Indication: MYOCARDIAL INFARCTION
     Dosage: 5 MG (5 MG, 1 IN 1 D), ORAL
     Route: 048
     Dates: start: 201212, end: 201307
  2. TICAGRELOR [Suspect]
     Indication: MYOCARDIAL INFARCTION
     Dosage: 180 MG (90 MG, 2 IN 1 D), ORAL
     Route: 048
     Dates: start: 20121229, end: 20130718
  3. TICAGRELOR [Suspect]
     Indication: ACUTE MYOCARDIAL INFARCTION
     Dosage: 180 MG (90 MG, 2 IN 1 D), ORAL
     Route: 048
     Dates: start: 20121229, end: 20130718
  4. ASPIRIN (ACETYLSALICYLIC ACID) [Concomitant]
  5. LEVOTHYROXINE (LEVOTHYROXINE) [Concomitant]
  6. OMEPRAZOLE (OMEPRAZOLE) [Concomitant]
  7. OXYCODONE (OXYCODONE) [Concomitant]
  8. PREDNISOLONE (PREDNISOLONE) [Concomitant]
  9. RAMIPRIL (RAMIPRIL) [Concomitant]
  10. SIMVASTATIN (SIMVASTATIN) [Concomitant]

REACTIONS (4)
  - Atrial flutter [None]
  - Presyncope [None]
  - Syncope [None]
  - Electrocardiogram abnormal [None]
